FAERS Safety Report 24755020 (Version 1)
Quarter: 2024Q4

REPORT INFORMATION
  Report Type: Report from Study
  Country: US (occurrence: US)
  Receive Date: 20241219
  Receipt Date: 20241219
  Transmission Date: 20250114
  Serious: Yes (Other)
  Sender: ALEXION PHARMACEUTICALS
  Company Number: US-AstraZeneca-CH-00768040A

PATIENT
  Weight: 92.1 kg

DRUGS (8)
  1. OSIMERTINIB [Suspect]
     Active Substance: OSIMERTINIB
     Indication: Lung neoplasm malignant
  2. OSIMERTINIB [Suspect]
     Active Substance: OSIMERTINIB
     Route: 048
  3. OSIMERTINIB [Suspect]
     Active Substance: OSIMERTINIB
  4. OSIMERTINIB [Suspect]
     Active Substance: OSIMERTINIB
     Route: 048
  5. MELOXICAM [Concomitant]
     Active Substance: MELOXICAM
     Route: 065
  6. MELOXICAM [Concomitant]
     Active Substance: MELOXICAM
     Route: 065
  7. ZYRTEC [Concomitant]
     Active Substance: CETIRIZINE HYDROCHLORIDE
     Route: 065
  8. ZYRTEC [Concomitant]
     Active Substance: CETIRIZINE HYDROCHLORIDE
     Route: 065

REACTIONS (1)
  - Suicide threat [Unknown]
